FAERS Safety Report 19173553 (Version 1)
Quarter: 2021Q2

REPORT INFORMATION
  Report Type: Report from Study
  Country: CA (occurrence: CA)
  Receive Date: 20210423
  Receipt Date: 20210423
  Transmission Date: 20210717
  Serious: Yes (Other)
  Sender: FDA-Public Use
  Company Number: CA-JNJFOC-20210437926

PATIENT
  Age: 50 Year
  Sex: Female
  Weight: 63.4 kg

DRUGS (1)
  1. REMICADE [Suspect]
     Active Substance: INFLIXIMAB
     Indication: BEHCET^S SYNDROME
     Route: 042
     Dates: start: 20200908

REACTIONS (1)
  - Helicobacter infection [Unknown]

NARRATIVE: CASE EVENT DATE: 20210419
